FAERS Safety Report 11471344 (Version 2)
Quarter: 2015Q3

REPORT INFORMATION
  Report Type: Spontaneous
  Country: US (occurrence: US)
  Receive Date: 20150903
  Receipt Date: 20150903
  Transmission Date: 20151125
  Serious: No
  Sender: FDA-Public Use
  Company Number: US-ELI_LILLY_AND_COMPANY-US201202001997

PATIENT
  Age: 49 Year
  Sex: Female

DRUGS (3)
  1. LYRICA [Concomitant]
     Active Substance: PREGABALIN
     Indication: FIBROMYALGIA
  2. XANAX [Concomitant]
     Active Substance: ALPRAZOLAM
     Indication: FIBROMYALGIA
  3. CYMBALTA [Suspect]
     Active Substance: DULOXETINE HYDROCHLORIDE
     Indication: FIBROMYALGIA

REACTIONS (8)
  - Decreased activity [Unknown]
  - Insomnia [Unknown]
  - Influenza like illness [Unknown]
  - Myalgia [Unknown]
  - Disturbance in attention [Unknown]
  - Tendon pain [Unknown]
  - Pain [Unknown]
  - Ligament pain [Unknown]
